FAERS Safety Report 10151771 (Version 1)
Quarter: 2014Q2

REPORT INFORMATION
  Report Type: Spontaneous
  Country: AT (occurrence: AT)
  Receive Date: 20140505
  Receipt Date: 20140505
  Transmission Date: 20141212
  Serious: Yes (Life-Threatening, Hospitalization)
  Sender: FDA-Public Use
  Company Number: AT-ROCHE-1393214

PATIENT
  Age: 82 Year
  Sex: Male
  Weight: 73 kg

DRUGS (4)
  1. AVASTIN [Suspect]
     Indication: RECTAL CANCER METASTATIC
     Dosage: 7.5 MG/KG.
     Route: 042
     Dates: start: 20130310
  2. XELODA [Suspect]
     Indication: RECTAL CANCER METASTATIC
     Dosage: FREQUENCY: 5-0-4
     Route: 065
     Dates: start: 20140310, end: 20140321
  3. SIMVASTATIN [Concomitant]
     Route: 065
  4. BICALUTAMIDE [Concomitant]

REACTIONS (5)
  - Atrial fibrillation [Recovered/Resolved]
  - Peripheral artery thrombosis [Recovered/Resolved]
  - Transient ischaemic attack [Recovered/Resolved]
  - Ischaemia [Recovered/Resolved]
  - Acute myocardial infarction [Recovered/Resolved]
